FAERS Safety Report 21173618 (Version 1)
Quarter: 2022Q3

REPORT INFORMATION
  Report Type: Spontaneous
  Country: US (occurrence: US)
  Receive Date: 20220804
  Receipt Date: 20220804
  Transmission Date: 20221026
  Serious: No
  Sender: FDA-Public Use
  Company Number: US-PERRIGO-21US010237

PATIENT
  Age: 16 Year
  Sex: Female
  Weight: 58.957 kg

DRUGS (6)
  1. LORATADINE [Suspect]
     Active Substance: LORATADINE
     Indication: Hypersensitivity
     Dosage: 30 MG, WITHIN 8 TO 10 HOURS
     Route: 048
     Dates: start: 20210722, end: 20210722
  2. LORATADINE [Suspect]
     Active Substance: LORATADINE
     Indication: Rash
  3. LORATADINE [Suspect]
     Active Substance: LORATADINE
     Indication: Swelling face
  4. BENADRYL                           /00000402/ [Concomitant]
     Indication: Hypersensitivity
     Dosage: UNKNOWN, UNKNOWN
     Route: 065
     Dates: start: 20210722, end: 20210722
  5. BENADRYL                           /00000402/ [Concomitant]
     Indication: Rash
  6. BENADRYL                           /00000402/ [Concomitant]
     Indication: Swelling face

REACTIONS (2)
  - Overdose [Recovered/Resolved]
  - Off label use [Unknown]

NARRATIVE: CASE EVENT DATE: 20210722
